FAERS Safety Report 9191037 (Version 6)
Quarter: 2013Q2

REPORT INFORMATION
  Report Type: Report from Study
  Country: JP (occurrence: JP)
  Receive Date: 20130326
  Receipt Date: 20130614
  Transmission Date: 20140414
  Serious: Yes (Hospitalization)
  Sender: FDA-Public Use
  Company Number: JP-ROCHE-1205286

PATIENT
  Age: 59 Year
  Sex: Male

DRUGS (8)
  1. TOCILIZUMAB [Suspect]
     Indication: RHEUMATOID ARTHRITIS
     Route: 041
     Dates: start: 20120306, end: 20120306
  2. TOCILIZUMAB [Suspect]
     Indication: RHEUMATOID ARTHRITIS
     Route: 041
     Dates: start: 20120822
  3. AMARYL [Concomitant]
     Indication: DIABETES MELLITUS
     Dosage: DOSAGE IS UNCERTAIN.
     Route: 048
     Dates: end: 20120418
  4. METFORMIN HYDROCHLORIDE [Concomitant]
     Indication: DIABETES MELLITUS
     Dosage: DOSAGE IS UNCERTAIN.
     Route: 048
     Dates: end: 20120330
  5. TAKEPRON [Concomitant]
     Indication: PROPHYLAXIS
     Dosage: DOSAGE IS UNCERTAIN.
     Route: 048
     Dates: start: 20120531
  6. NOVORAPID [Concomitant]
     Indication: DIABETES MELLITUS
     Dosage: UNCERTAIN DOSAGE AND OTHER PURPOSES: ADVERSE EVENT PREVENTION
     Route: 058
     Dates: start: 20120531, end: 20120709
  7. APIDRA [Concomitant]
     Indication: DIABETES MELLITUS
     Dosage: UNCERTAIN DOSAGE AND OTHER PURPOSES: ADVERSE EVENT PREVENTION
     Route: 058
     Dates: start: 20120710
  8. PREDONINE [Concomitant]
     Route: 048
     Dates: start: 20120724

REACTIONS (4)
  - Autoimmune hepatitis [Recovered/Resolved]
  - Blood glucose increased [Recovering/Resolving]
  - Constipation [Recovering/Resolving]
  - Hepatic cyst [Not Recovered/Not Resolved]
